FAERS Safety Report 22026299 (Version 1)
Quarter: 2023Q1

REPORT INFORMATION
  Report Type: Spontaneous
  Country: US (occurrence: None)
  Receive Date: 20230223
  Receipt Date: 20230223
  Transmission Date: 20230418
  Serious: No
  Sender: FDA-Public Use
  Company Number: US-ROCHE-3207528

PATIENT
  Sex: Female
  Weight: 53.118 kg

DRUGS (5)
  1. XOLAIR [Suspect]
     Active Substance: OMALIZUMAB
     Indication: Urticaria
     Dosage: ONLY TOOK ONE SHOT IN LEFT ARM, DECLINED SECOND ONE
     Route: 058
     Dates: start: 20221011
  2. XOLAIR [Suspect]
     Active Substance: OMALIZUMAB
  3. XOLAIR [Suspect]
     Active Substance: OMALIZUMAB
  4. FAMOTIDINE [Concomitant]
     Active Substance: FAMOTIDINE
     Dosage: PATIENT TOOK ADDITIONAL 40MG ;ONGOING: YES
     Route: 048
  5. CETIRIZINE [Concomitant]
     Active Substance: CETIRIZINE HYDROCHLORIDE
     Indication: Hypersensitivity
     Dosage: PATIENT USUALLY TAKES 2 TEASPOONS BUT TOOK ADDITIONAL 2 TEASPOONS FOR TOTAL OF 4 TEASPOONS ;ONGOING:
     Route: 048

REACTIONS (2)
  - Rash macular [Recovered/Resolved]
  - Hypersensitivity [Unknown]

NARRATIVE: CASE EVENT DATE: 20221012
